FAERS Safety Report 7098026-5 (Version None)
Quarter: 2010Q4

REPORT INFORMATION
  Report Type: 
  Country: None (occurrence: None)
  Receive Date: 20101103
  Receipt Date: 20101020
  Transmission Date: 20110411
  Serious: Yes (Hospitalization)
  Sender: FDA-Public Use
  Company Number: US-SOLVAY-00310006406

PATIENT
  Age: 12 Year
  Sex: Male

DRUGS (4)
  1. FLUVOXAMINE MALEATE [Suspect]
     Indication: OBSESSIVE-COMPULSIVE DISORDER
     Dates: start: 20090401, end: 20090101
  2. CLONAZEPAM [Concomitant]
  3. FLUOXETINE [Concomitant]
  4. MIRTAZAPINE [Concomitant]

REACTIONS (5)
  - AGGRESSION [None]
  - DISINHIBITION [None]
  - IMPULSIVE BEHAVIOUR [None]
  - JUDGEMENT IMPAIRED [None]
  - NEGATIVISM [None]
